FAERS Safety Report 14754278 (Version 6)
Quarter: 2019Q2

REPORT INFORMATION
  Report Type: Spontaneous
  Country: US (occurrence: US)
  Receive Date: 20180412
  Receipt Date: 20190410
  Transmission Date: 20190711
  Serious: Yes (Hospitalization)
  Sender: FDA-Public Use
  Company Number: US-ACTELION-A-NJ2018-170416

PATIENT
  Age: 11 Year
  Sex: Female
  Weight: 48.98 kg

DRUGS (6)
  1. TRACLEER [Suspect]
     Active Substance: BOSENTAN
     Indication: PULMONARY ARTERIAL HYPERTENSION
     Dosage: 125 MG, BID
     Route: 048
     Dates: start: 20171124
  2. TYVASO [Concomitant]
     Active Substance: TREPROSTINIL
     Dosage: 9 DF, QID
     Route: 055
     Dates: start: 201510
  3. ADCIRCA [Concomitant]
     Active Substance: TADALAFIL
     Dosage: 40 MG, QD
     Route: 048
     Dates: start: 20170322
  4. ADCIRCA [Concomitant]
     Active Substance: TADALAFIL
     Dosage: 40 MG, QD
     Route: 048
     Dates: start: 201607
  5. TYVASO [Concomitant]
     Active Substance: TREPROSTINIL
     Dosage: 9 DF, QID
     Route: 055
     Dates: start: 20171124
  6. AMLODIPINE [Concomitant]
     Active Substance: AMLODIPINE BESYLATE
     Dosage: 5 MG, QD
     Route: 048
     Dates: start: 20150902

REACTIONS (6)
  - Headache [Unknown]
  - Dyspnoea [Recovered/Resolved]
  - Pneumonia [Not Recovered/Not Resolved]
  - Product dose omission [Recovered/Resolved]
  - Dizziness [Recovered/Resolved]
  - Back pain [Unknown]

NARRATIVE: CASE EVENT DATE: 20180403
